FAERS Safety Report 6051780-3 (Version None)
Quarter: 2009Q1

REPORT INFORMATION
  Report Type: 
  Country: None (occurrence: None)
  Receive Date: 20090126
  Receipt Date: 20090114
  Transmission Date: 20090719
  Serious: Yes (Hospitalization)
  Sender: FDA-Public Use
  Company Number: PHHY2009CL01513

PATIENT
  Age: 64 Year
  Sex: Male

DRUGS (1)
  1. TAREG D [Suspect]
     Indication: HYPERTENSION
     Dosage: 1 TABLET PER DAY(160 MG+12.5 MG)
     Route: 048
     Dates: start: 20081101

REACTIONS (1)
  - MYOCARDIAL INFARCTION [None]
